FAERS Safety Report 26108896 (Version 1)
Quarter: 2025Q4

REPORT INFORMATION
  Report Type: Spontaneous
  Country: US (occurrence: None)
  Receive Date: 20251128
  Receipt Date: 20251128
  Transmission Date: 20260118
  Serious: No
  Sender: FDA-CTU
  Company Number: None

PATIENT
  Age: 34 Year
  Sex: Male

DRUGS (1)
  1. HYMPAVZI [Suspect]
     Active Substance: MARSTACIMAB-HNCQ
     Indication: Factor IX deficiency
     Dosage: 150 MG/ML WEEKLY SUBCUTANEOUS ?
     Route: 058
     Dates: start: 20250708

REACTIONS (4)
  - Urticaria [None]
  - Swelling [None]
  - Muscle spasms [None]
  - Brain fog [None]

NARRATIVE: CASE EVENT DATE: 20251124
